FAERS Safety Report 4978635-7 (Version None)
Quarter: 2006Q2

REPORT INFORMATION
  Report Type: 
  Country: None (occurrence: None)
  Receive Date: 20060420
  Receipt Date: 20060215
  Transmission Date: 20061013
  Serious: Yes (Hospitalization, Other)
  Sender: FDA-Public Use
  Company Number: US-MERCK-0602USA04473

PATIENT
  Age: 68 Year
  Sex: Female
  Weight: 42 kg

DRUGS (11)
  1. VIOXX [Suspect]
     Indication: ARTHRITIS
     Route: 048
     Dates: start: 20001212, end: 20040901
  2. LEVAQUIN [Concomitant]
     Route: 065
  3. SYNTHROID [Concomitant]
     Route: 065
  4. CIPRO [Concomitant]
     Route: 065
  5. TAGAMET [Concomitant]
     Route: 065
  6. OXYCODONE [Concomitant]
     Route: 065
  7. PREMARIN [Concomitant]
     Route: 065
  8. PLAVIX [Concomitant]
     Route: 065
  9. BENTYL [Concomitant]
     Route: 065
  10. MYCELEX [Concomitant]
     Route: 065
  11. DARVOCET [Concomitant]
     Route: 065

REACTIONS (12)
  - ABDOMINAL PAIN LOWER [None]
  - ARTERIOSCLEROSIS CORONARY ARTERY [None]
  - CEREBROVASCULAR ACCIDENT [None]
  - DIARRHOEA [None]
  - ECCHYMOSIS [None]
  - FLATULENCE [None]
  - LYMPHADENOPATHY [None]
  - MYOCARDIAL INFARCTION [None]
  - NEOPLASM MALIGNANT [None]
  - OEDEMA [None]
  - PAIN IN EXTREMITY [None]
  - TUBERCULOSIS [None]
